FAERS Safety Report 5961923-5 (Version None)
Quarter: 2008Q4

REPORT INFORMATION
  Report Type: 
  Country: None (occurrence: None)
  Receive Date: 20081121
  Receipt Date: 20081110
  Transmission Date: 20090506
  Serious: Yes (Other)
  Sender: FDA-Public Use
  Company Number: TR-NOVOPROD-280725

PATIENT
  Sex: Female
  Weight: 89 kg

DRUGS (2)
  1. MIXTARD 30HM [Suspect]
     Indication: TYPE 2 DIABETES MELLITUS
     Dosage: 18 IU, QD
     Route: 058
     Dates: start: 20080920
  2. LEVOTHYROXINE SODIUM [Concomitant]
     Dosage: .15 MG, QD
     Route: 048
     Dates: start: 20070101

REACTIONS (2)
  - ABORTION SPONTANEOUS [None]
  - PREGNANCY [None]
